FAERS Safety Report 8772812 (Version 1)
Quarter: 2012Q4

REPORT INFORMATION
  Report Type: 
  Country: JP (occurrence: JP)
  Receive Date: 20120907
  Receipt Date: 20120907
  Transmission Date: 20130627
  Serious: Yes (Death, Other)
  Sender: FDA-Public Use
  Company Number: PHHY2009JP071260

PATIENT
  Age: 29 Year
  Sex: Male

DRUGS (4)
  1. CICLOSPORIN [Suspect]
     Indication: PROPHYLAXIS AGAINST GRAFT VERSUS HOST DISEASE
  2. CIPROFLOXACIN [Concomitant]
  3. FLUCONAZOLE [Concomitant]
  4. METHOTREXATE [Concomitant]
     Indication: PROPHYLAXIS AGAINST GRAFT VERSUS HOST DISEASE

REACTIONS (11)
  - Pulmonary alveolar haemorrhage [Fatal]
  - Interstitial lung disease [Unknown]
  - Cystitis haemorrhagic [Unknown]
  - Renal haemorrhage [Unknown]
  - Hydronephrosis [Unknown]
  - Renal failure [Unknown]
  - Kidney enlargement [Unknown]
  - Renal tubular necrosis [Unknown]
  - Adenovirus infection [Unknown]
  - Cytomegalovirus infection [Unknown]
  - Haemodialysis [None]
